FAERS Safety Report 20163108 (Version 2)
Quarter: 2022Q3

REPORT INFORMATION
  Report Type: Spontaneous
  Country: US (occurrence: US)
  Receive Date: 20211209
  Receipt Date: 20220728
  Transmission Date: 20221027
  Serious: Yes (Other)
  Sender: FDA-Public Use
  Company Number: US-SUN PHARMACEUTICAL INDUSTRIES LTD-2021R1-319910

PATIENT
  Age: 32 Year
  Sex: Male

DRUGS (2)
  1. TESTOSTERONE [Suspect]
     Active Substance: TESTOSTERONE
     Indication: Muscle building therapy
     Dosage: UNK
     Route: 065
  2. METHANDROSTENOLONE [Suspect]
     Active Substance: METHANDROSTENOLONE
     Indication: Muscle building therapy
     Dosage: UNK
     Route: 065

REACTIONS (1)
  - Hepatocellular carcinoma [Unknown]
